FAERS Safety Report 16940412 (Version 1)
Quarter: 2019Q4

REPORT INFORMATION
  Report Type: Spontaneous
  Country: DK (occurrence: DK)
  Receive Date: 20191021
  Receipt Date: 20191021
  Transmission Date: 20200122
  Serious: Yes (Hospitalization)
  Sender: FDA-Public Use
  Company Number: DK-HTU-2019DK019683

PATIENT
  Age: 64 Year
  Sex: Female

DRUGS (5)
  1. GABAPENTIN ^2CARE4^ [Concomitant]
     Indication: NEURALGIA
     Dosage: 1800 MILLIGRAM, QD
     Route: 048
     Dates: start: 20170419
  2. AKYNZEO [Suspect]
     Active Substance: NETUPITANT\PALONOSETRON HYDROCHLORIDE
     Indication: PROPHYLAXIS OF NAUSEA AND VOMITING
     Dosage: 1 DOSAGE FORM, SINGLE
     Route: 048
     Dates: start: 20190903
  3. CARBOPLATIN ^ACCORD^ [Suspect]
     Active Substance: CARBOPLATIN
     Indication: NON-SMALL CELL LUNG CANCER
     Dosage: 700 MILLIGRAM
     Route: 042
     Dates: start: 20190903
  4. FUROSEMID ORIFARM [Concomitant]
     Active Substance: FUROSEMIDE
     Indication: HYPERTENSION
     Dosage: 80 MILLIGRAM, QD
     Route: 048
     Dates: start: 20181030
  5. NAVELBINE [Interacting]
     Active Substance: VINORELBINE TARTRATE
     Indication: NON-SMALL CELL LUNG CANCER
     Dosage: UNK
     Route: 048
     Dates: start: 20190903

REACTIONS (7)
  - Abdominal pain [Unknown]
  - Mechanical ileus [Not Recovered/Not Resolved]
  - Neutropenia [Recovered/Resolved]
  - Neutropenic colitis [Unknown]
  - Drug interaction [Unknown]
  - Stomatitis [Unknown]
  - Colitis [Not Recovered/Not Resolved]

NARRATIVE: CASE EVENT DATE: 201909
